FAERS Safety Report 21081628 (Version 1)
Quarter: 2022Q3

REPORT INFORMATION
  Report Type: Spontaneous
  Country: US (occurrence: None)
  Receive Date: 20220714
  Receipt Date: 20220714
  Transmission Date: 20221027
  Serious: Yes (Hospitalization)
  Sender: FDA-Public Use
  Company Number: None

PATIENT
  Age: 70 Year
  Sex: Male
  Weight: 64.3 kg

DRUGS (1)
  1. CISPLATIN [Suspect]
     Active Substance: CISPLATIN
     Dates: end: 20210517

REACTIONS (4)
  - Major depression [None]
  - Generalised anxiety disorder [None]
  - Acute stress disorder [None]
  - Glossodynia [None]

NARRATIVE: CASE EVENT DATE: 20210802
